FAERS Safety Report 4865181-4 (Version None)
Quarter: 2005Q4

REPORT INFORMATION
  Report Type: 
  Country: None (occurrence: None)
  Receive Date: 20051223
  Receipt Date: 20051221
  Transmission Date: 20060501
  Serious: Yes (Other)
  Sender: FDA-Public Use
  Company Number: US-GLAXOSMITHKLINE-A0586654A

PATIENT
  Age: 39 Year
  Sex: Female

DRUGS (3)
  1. PAROXETINE HCL [Suspect]
     Dosage: 30MG TWICE PER DAY
     Route: 048
     Dates: start: 20050701, end: 20051201
  2. PAXIL [Suspect]
     Dosage: 30MG TWICE PER DAY
     Dates: start: 19990101
  3. GLUCOPHAGE [Concomitant]

REACTIONS (4)
  - DRUG INEFFECTIVE [None]
  - NORMAL DELIVERY [None]
  - RECTOCELE [None]
  - SUICIDAL IDEATION [None]
